FAERS Safety Report 5596605-5 (Version None)
Quarter: 2008Q1

REPORT INFORMATION
  Report Type: 
  Country: None (occurrence: None)
  Receive Date: 20080118
  Receipt Date: 20080108
  Transmission Date: 20080703
  Serious: Yes (Other)
  Sender: FDA-Public Use
  Company Number: US-PFIZER INC-2008002149

PATIENT
  Age: 56 Year
  Sex: Male

DRUGS (7)
  1. SUTENT [Suspect]
     Indication: METASTATIC RENAL CELL CARCINOMA
     Dosage: DAILY DOSE:37.5
  2. AVASTIN [Suspect]
     Indication: METASTATIC RENAL CELL CARCINOMA
     Dosage: DAILY DOSE:10MG/KG-FREQ:Q2W
  3. LEVOTHYROXINE SODIUM [Concomitant]
  4. TRIAMTERENE AND HYDROCHLOROTHIAZIDE [Concomitant]
  5. FAMOTIDINE [Concomitant]
  6. AMLODIPINE [Concomitant]
  7. ESOMEPRAZOLE MAGNESIUM [Concomitant]

REACTIONS (1)
  - THROMBOTIC MICROANGIOPATHY [None]
